FAERS Safety Report 6608738-2 (Version None)
Quarter: 2010Q1

REPORT INFORMATION
  Report Type: 
  Country: None (occurrence: None)
  Receive Date: 20100301
  Receipt Date: 20100218
  Transmission Date: 20100710
  Serious: Yes (Hospitalization)
  Sender: FDA-Public Use
  Company Number: FI-JNJFOC-20071004579

PATIENT
  Sex: Male

DRUGS (6)
  1. REMICADE [Suspect]
     Indication: IRIDOCYCLITIS
  2. REMICADE [Suspect]
  3. ANTIHISTAMINES [Concomitant]
     Indication: PREMEDICATION
  4. METHOTREXATE [Concomitant]
  5. PARACETAMOL [Concomitant]
     Indication: PREMEDICATION
  6. CETIRIZINE HCL [Concomitant]
     Indication: PREMEDICATION

REACTIONS (4)
  - ABDOMINAL PAIN UPPER [None]
  - COUGH [None]
  - DYSPNOEA [None]
  - INFUSION RELATED REACTION [None]
